FAERS Safety Report 10690615 (Version 1)
Quarter: 2015Q1

REPORT INFORMATION
  Report Type: Spontaneous
  Country: CH (occurrence: None)
  Receive Date: 20150102
  Receipt Date: 20150102
  Transmission Date: 20150720
  Serious: Yes (Hospitalization, Other)
  Sender: FDA-Public Use
  Company Number: CH-ZYDUS-006218

PATIENT
  Age: 65 Year
  Sex: Male

DRUGS (8)
  1. VANCOMYCIN [Suspect]
     Active Substance: VANCOMYCIN
  2. COTRIMOXAZOLE [Suspect]
     Active Substance: SULFAMETHOXAZOLE\TRIMETHOPRIM
  3. DIPYRONE [Suspect]
     Active Substance: DIPYRONE
  4. CLINDAMYCIN [Suspect]
     Active Substance: CLINDAMYCIN\CLINDAMYCIN PHOSPHATE
  5. RIFAMPICIN [Suspect]
     Active Substance: RIFAMPIN
  6. CEFTRIAXONE. [Suspect]
     Active Substance: CEFTRIAXONE
  7. PANTOPRAZOLE [Suspect]
     Active Substance: PANTOPRAZOLE SODIUM
  8. CEFAZOLIN [Suspect]
     Active Substance: CEFAZOLIN

REACTIONS (6)
  - Pyrexia [None]
  - Drug reaction with eosinophilia and systemic symptoms [None]
  - Renal failure [None]
  - Lymphadenopathy [None]
  - Hepatosplenomegaly [None]
  - Hepatic failure [None]
